FAERS Safety Report 9203731 (Version 3)
Quarter: 2014Q4

REPORT INFORMATION
  Report Type: Spontaneous
  Country: US (occurrence: US)
  Receive Date: 20130402
  Receipt Date: 20141124
  Transmission Date: 20150529
  Serious: Yes (Hospitalization)
  Sender: FDA-Public Use
  Company Number: US-BAYER-2013-037721

PATIENT
  Age: 44 Year
  Sex: Female
  Weight: 56.69 kg

DRUGS (13)
  1. CLARINEX [Concomitant]
     Active Substance: DESLORATADINE
     Indication: MULTIPLE ALLERGIES
     Dosage: UNK
     Dates: start: 1993
  2. LEVAQUIN [Concomitant]
     Active Substance: LEVOFLOXACIN
     Dosage: 750 MG, UNK
  3. NEXIUM [Concomitant]
     Active Substance: ESOMEPRAZOLE MAGNESIUM
     Indication: GASTROOESOPHAGEAL REFLUX DISEASE
     Dosage: 40 MG, QD
     Dates: start: 1993
  4. KLONOPIN [Concomitant]
     Active Substance: CLONAZEPAM
     Indication: ANXIETY
     Dosage: 0.5 MG, BID
     Dates: start: 1993
  5. FLONASE [Concomitant]
     Active Substance: FLUTICASONE PROPIONATE
     Dosage: 1 EACH NOSTRIL EVERY OTHER DAY
  6. PAXIL [Concomitant]
     Active Substance: PAROXETINE HYDROCHLORIDE
     Indication: ANXIETY
     Dosage: 12.5 MG, QD
     Dates: start: 1993
  7. IMITREX [Concomitant]
     Active Substance: SUMATRIPTAN\SUMATRIPTAN SUCCINATE
     Indication: MIGRAINE
  8. METRONIDAZOLE. [Concomitant]
     Active Substance: METRONIDAZOLE
     Dosage: 0.75 %, UNK
  9. YAZ [Suspect]
     Active Substance: DROSPIRENONE\ETHINYL ESTRADIOL
     Dosage: UNK
     Route: 048
     Dates: start: 200807, end: 201004
  10. GIANVI [Suspect]
     Active Substance: DROSPIRENONE\ETHINYL ESTRADIOL
     Dosage: UNK
     Route: 048
     Dates: start: 200807, end: 201108
  11. NITROFURANTOIN. [Concomitant]
     Active Substance: NITROFURANTOIN
     Dosage: 100 MG, BID
  12. PROTONIX [Concomitant]
     Active Substance: PANTOPRAZOLE SODIUM
  13. VALACICLOVIR [Concomitant]
     Active Substance: VALACYCLOVIR HYDROCHLORIDE
     Dosage: 1 G, UNK

REACTIONS (5)
  - Pain [None]
  - Cerebral infarction [None]
  - Cerebrovascular accident [None]
  - Injury [None]
  - General physical health deterioration [None]

NARRATIVE: CASE EVENT DATE: 20110812
